FAERS Safety Report 11883314 (Version 1)
Quarter: 2015Q4

REPORT INFORMATION
  Report Type: Spontaneous
  Country: US (occurrence: US)
  Receive Date: 20151231
  Receipt Date: 20151231
  Transmission Date: 20160305
  Serious: No
  Sender: FDA-Public Use
  Company Number: US-TEIKOKU PHARMA USA-TPU2015-00642

PATIENT
  Sex: Female
  Weight: 81.72 kg

DRUGS (7)
  1. LIDODERM [Suspect]
     Active Substance: LIDOCAINE
     Indication: PAIN
     Dosage: 1-2 PATCHES
     Route: 061
     Dates: start: 201506
  2. LYRICA [Concomitant]
     Active Substance: PREGABALIN
     Indication: FIBROMYALGIA
     Route: 048
  3. NAPROXEN SODIUM. [Concomitant]
     Active Substance: NAPROXEN SODIUM
     Indication: PAIN
     Route: 048
     Dates: start: 2001
  4. HYDROCODONE BITARTRATE AND ACETAMINOPHEN [Concomitant]
     Active Substance: ACETAMINOPHEN\HYDROCODONE BITARTRATE
     Indication: PAIN
     Dosage: 10/325MG
     Route: 048
  5. TYLENOL [Concomitant]
     Active Substance: ACETAMINOPHEN
     Indication: PAIN
     Dosage: 2-3 TABLETS
     Route: 048
     Dates: start: 2001
  6. MOTRIN [Concomitant]
     Active Substance: IBUPROFEN
     Indication: PAIN
     Route: 048
     Dates: start: 2001
  7. LYRICA [Concomitant]
     Active Substance: PREGABALIN
     Dates: start: 201506

REACTIONS (4)
  - Speech disorder [Not Recovered/Not Resolved]
  - Incorrect dose administered [Unknown]
  - Thinking abnormal [Not Recovered/Not Resolved]
  - Daydreaming [Not Recovered/Not Resolved]
